FAERS Safety Report 6282729-6 (Version None)
Quarter: 2009Q3

REPORT INFORMATION
  Report Type: 
  Country: None (occurrence: None)
  Receive Date: 20090722
  Receipt Date: 20090722
  Transmission Date: 20100115
  Serious: Yes (Hospitalization)
  Sender: FDA-Public Use
  Company Number: None

PATIENT
  Age: 46 Year
  Sex: Male

DRUGS (2)
  1. VANCOMYCIN [Suspect]
     Indication: AMPUTATION
     Dosage: 1 GM BID IV
     Route: 042
     Dates: start: 20090623, end: 20090709
  2. PIPERACILLIN SODIUM AND TAZOBACTAM SODIUM [Suspect]
     Indication: TOE AMPUTATION
     Dosage: 3.375 GM QID IV
     Route: 042
     Dates: start: 20090623, end: 20090710

REACTIONS (1)
  - RENAL FAILURE ACUTE [None]
